FAERS Safety Report 12654349 (Version 2)
Quarter: 2016Q3

REPORT INFORMATION
  Report Type: Report from Study
  Country: PT (occurrence: PT)
  Receive Date: 20160816
  Receipt Date: 20160830
  Transmission Date: 20161109
  Serious: Yes (Other)
  Sender: FDA-Public Use
  Company Number: PHHY2016PT104730

PATIENT
  Age: 35 Year
  Sex: Male

DRUGS (1)
  1. GILENYA [Suspect]
     Active Substance: FINGOLIMOD HYDROCHLORIDE
     Indication: MULTIPLE SCLEROSIS
     Dosage: 0.5 MG, QD
     Route: 048
     Dates: start: 20160317

REACTIONS (15)
  - Tremor [Unknown]
  - Disease recurrence [Unknown]
  - Fall [Unknown]
  - Headache [Recovering/Resolving]
  - Presyncope [Not Recovered/Not Resolved]
  - Ligament sprain [Recovering/Resolving]
  - Contusion [Recovering/Resolving]
  - Pallor [Unknown]
  - Hypoaesthesia [Not Recovered/Not Resolved]
  - Hypotension [Unknown]
  - Pain in extremity [Recovering/Resolving]
  - Malaise [Not Recovered/Not Resolved]
  - Cold sweat [Unknown]
  - Muscular weakness [Recovering/Resolving]
  - Epilepsy [Unknown]

NARRATIVE: CASE EVENT DATE: 20160728
